FAERS Safety Report 23262985 (Version 1)
Quarter: 2023Q4

REPORT INFORMATION
  Report Type: Spontaneous
  Country: CA (occurrence: CA)
  Receive Date: 20231205
  Receipt Date: 20231205
  Transmission Date: 20240110
  Serious: Yes (Death, Other)
  Sender: FDA-Public Use
  Company Number: CA-ABBVIE-5523377

PATIENT
  Age: 48 Year
  Sex: Female

DRUGS (3)
  1. HUMIRA [Suspect]
     Active Substance: ADALIMUMAB
     Indication: Rheumatoid arthritis
     Route: 058
  2. HUMIRA [Suspect]
     Active Substance: ADALIMUMAB
     Indication: Psoriatic arthropathy
  3. HUMIRA [Suspect]
     Active Substance: ADALIMUMAB
     Indication: Product used for unknown indication

REACTIONS (102)
  - Duodenal ulcer perforation [Fatal]
  - Autoimmune disorder [Fatal]
  - General physical health deterioration [Fatal]
  - Lower limb fracture [Fatal]
  - Joint range of motion decreased [Fatal]
  - Foot deformity [Fatal]
  - Dry mouth [Fatal]
  - Oedema [Fatal]
  - Decreased appetite [Fatal]
  - Asthenia [Fatal]
  - Pain [Fatal]
  - Dislocation of vertebra [Fatal]
  - Knee arthroplasty [Fatal]
  - Ear infection [Fatal]
  - Seronegative arthritis [Fatal]
  - Musculoskeletal pain [Fatal]
  - Lip dry [Fatal]
  - Grip strength decreased [Fatal]
  - Wound [Fatal]
  - Obesity [Fatal]
  - Contusion [Fatal]
  - Pulmonary fibrosis [Fatal]
  - Pericarditis [Fatal]
  - Headache [Fatal]
  - Joint dislocation [Fatal]
  - Lower respiratory tract infection [Fatal]
  - Impaired healing [Fatal]
  - Road traffic accident [Fatal]
  - Oedema peripheral [Fatal]
  - Type 2 diabetes mellitus [Fatal]
  - Discomfort [Fatal]
  - Muscular weakness [Fatal]
  - Blood cholesterol increased [Fatal]
  - Inflammation [Fatal]
  - Swelling [Fatal]
  - Fibromyalgia [Fatal]
  - Ear pain [Fatal]
  - Hypoaesthesia [Fatal]
  - Asthma [Fatal]
  - Adjustment disorder with depressed mood [Fatal]
  - Deep vein thrombosis postoperative [Fatal]
  - Lupus vulgaris [Fatal]
  - Laryngitis [Fatal]
  - Nasopharyngitis [Fatal]
  - Systemic lupus erythematosus [Fatal]
  - Gait disturbance [Fatal]
  - Rash [Fatal]
  - Swollen joint count increased [Fatal]
  - Rheumatoid arthritis [Fatal]
  - Anti-cyclic citrullinated peptide antibody positive [Fatal]
  - Stomatitis [Fatal]
  - Bone erosion [Fatal]
  - Abdominal pain [Fatal]
  - Sleep disorder due to general medical condition, insomnia type [Fatal]
  - Arthropathy [Fatal]
  - Musculoskeletal stiffness [Fatal]
  - Delirium [Fatal]
  - Muscle spasms [Fatal]
  - Gastrointestinal disorder [Fatal]
  - Ill-defined disorder [Fatal]
  - Muscle injury [Fatal]
  - Osteoarthritis [Fatal]
  - Breast cancer stage II [Fatal]
  - Infection [Fatal]
  - Glossodynia [Fatal]
  - Bursitis [Fatal]
  - Osteoporosis [Fatal]
  - Fatigue [Fatal]
  - Joint stiffness [Fatal]
  - Exostosis [Fatal]
  - Arthralgia [Fatal]
  - Mobility decreased [Fatal]
  - Drug hypersensitivity [Fatal]
  - Dyspnoea [Fatal]
  - Chest pain [Fatal]
  - Abdominal pain upper [Fatal]
  - C-reactive protein abnormal [Fatal]
  - Pain in extremity [Fatal]
  - Weight increased [Fatal]
  - Synovitis [Fatal]
  - Hypertension [Fatal]
  - Insomnia [Fatal]
  - Sleep disorder [Fatal]
  - Infusion related reaction [Fatal]
  - Irritable bowel syndrome [Fatal]
  - Injury [Fatal]
  - Hip arthroplasty [Fatal]
  - Pruritus [Fatal]
  - Visual impairment [Fatal]
  - Rheumatic fever [Fatal]
  - Hepatic cirrhosis [Fatal]
  - Hypercholesterolaemia [Fatal]
  - Facet joint syndrome [Fatal]
  - Anti-cyclic citrullinated peptide antibody [Fatal]
  - Lupus-like syndrome [Fatal]
  - Blister [Fatal]
  - Paraesthesia [Fatal]
  - Hand deformity [Fatal]
  - Liver disorder [Fatal]
  - Psoriatic arthropathy [Fatal]
  - Depression [Fatal]
  - Diarrhoea [Fatal]
